FAERS Safety Report 7416959-4 (Version None)
Quarter: 2011Q2

REPORT INFORMATION
  Report Type: 
  Country: None (occurrence: None)
  Receive Date: 20110408
  Receipt Date: 20110330
  Transmission Date: 20111010
  Serious: Yes (Other)
  Sender: FDA-Public Use
  Company Number: 2010EU006155

PATIENT
  Sex: Female

DRUGS (8)
  1. CORTICOSTEROIDS [Concomitant]
  2. METRONIDAZOL (METRONDAZOLE) [Concomitant]
  3. CLOBETASOL PROPIONATE [Concomitant]
  4. TACROLIMUS [Suspect]
     Indication: DERMATITIS ATOPIC
     Dosage: 0.03%, PRN, TOPICAL;
     Route: 061
     Dates: start: 19990208, end: 20060208
  5. TACROLIMUS [Suspect]
     Indication: DERMATITIS ATOPIC
     Dosage: 0.03%, PRN, TOPICAL;
     Route: 061
     Dates: start: 20101228
  6. TRIAMCINOLON (TRIAMCINOLONE) [Concomitant]
  7. MICROGYNON (ETHINYLESTRADIOL) [Concomitant]
  8. PIMECROLIMUS [Concomitant]

REACTIONS (3)
  - LYMPHADENOPATHY [None]
  - LYMPH NODE PALPABLE [None]
  - LYMPH NODE PAIN [None]
